FAERS Safety Report 8576117-7 (Version None)
Quarter: 2012Q3

REPORT INFORMATION
  Report Type: 
  Country: None (occurrence: None)
  Receive Date: 20120807
  Receipt Date: 20120712
  Transmission Date: 20120928
  Serious: No
  Sender: FDA-Public Use
  Company Number: US-009507513-1207USA004773

PATIENT

DRUGS (17)
  1. VICTRELIS [Suspect]
     Dosage: 800 MG, TID
     Route: 048
  2. RIBAVIRIN [Suspect]
     Dosage: UNK, QD
  3. AMLODIPINE [Concomitant]
     Dosage: 10 MG, UNK
  4. METOPROLOL SUCCINATE [Concomitant]
     Dosage: 25 MG, UNK
  5. TRAZODONE HYDROCHLORIDE [Concomitant]
     Dosage: 50 MG, UNK
  6. LEVEMIR [Concomitant]
  7. COUMADIN [Concomitant]
     Dosage: 2 MG, UNK
  8. VITAMIN D [Concomitant]
     Dosage: UNK
  9. GABAPENTIN [Concomitant]
     Dosage: 100 MG, UNK
  10. LISINOPRIL [Concomitant]
     Dosage: 40 MG, UNK
  11. NEXIUM [Concomitant]
     Dosage: 20 MG, UNK
  12. MULTI-VITAMINS [Concomitant]
  13. NOVOLOG [Concomitant]
  14. PEGASYS [Suspect]
     Dosage: 180 MICROGRAM, QM
  15. AMBIEN CR [Concomitant]
     Dosage: 6.25 MG, UNK
  16. PRAVASTATIN SODIUM [Concomitant]
     Dosage: 20 MG, UNK
  17. ASCORBIC ACID [Concomitant]
     Dosage: 500 MG, UNK

REACTIONS (2)
  - ANAEMIA [None]
  - DYSGEUSIA [None]
